FAERS Safety Report 16876360 (Version 1)
Quarter: 2019Q4

REPORT INFORMATION
  Report Type: Spontaneous
  Country: US (occurrence: US)
  Receive Date: 20191002
  Receipt Date: 20191002
  Transmission Date: 20200122
  Serious: Yes (Disabling)
  Sender: FDA-Public Use
  Company Number: None

PATIENT
  Sex: Male
  Weight: 94.5 kg

DRUGS (7)
  1. IMITREX [Concomitant]
     Active Substance: SUMATRIPTAN SUCCINATE
  2. COQ10 [Concomitant]
     Active Substance: UBIDECARENONE
  3. VITAMIN C [Concomitant]
     Active Substance: ASCORBIC ACID
  4. LEVAQUIN [Suspect]
     Active Substance: LEVOFLOXACIN
     Indication: SINUSITIS
     Route: 048
     Dates: start: 20050215
  5. TORADOL [Concomitant]
     Active Substance: KETOROLAC TROMETHAMINE
  6. CIPROFLOXACIN. [Suspect]
     Active Substance: CIPROFLOXACIN
     Indication: SINUSITIS
     Route: 048
     Dates: start: 20050401
  7. MAGNESIUM [Concomitant]
     Active Substance: MAGNESIUM

REACTIONS (5)
  - Disability [None]
  - Gait inability [None]
  - Toxicity to various agents [None]
  - Anxiety [None]
  - Tendon rupture [None]
